FAERS Safety Report 9638122 (Version 1)
Quarter: 2013Q4

REPORT INFORMATION
  Report Type: Spontaneous
  Country: US (occurrence: US)
  Receive Date: 20131022
  Receipt Date: 20131022
  Transmission Date: 20140711
  Serious: No
  Sender: FDA-Public Use
  Company Number: US-PFIZER INC-2013298369

PATIENT
  Age: 64 Year
  Sex: Female
  Weight: 54.42 kg

DRUGS (4)
  1. DETROL [Suspect]
     Indication: HYPERTONIC BLADDER
     Dosage: 2 MG, 1X/DAY
     Route: 048
  2. DETROL [Suspect]
     Dosage: 2 MG, 1X/DAY
     Route: 048
  3. CIMETIDINE [Concomitant]
     Dosage: UNK
  4. LORAZEPAM [Concomitant]
     Dosage: 0.5 MG, 1X/DAY

REACTIONS (3)
  - Hypertension [Unknown]
  - Panic attack [Unknown]
  - Drug ineffective [Unknown]
